FAERS Safety Report 14610226 (Version 1)
Quarter: 2018Q1

REPORT INFORMATION
  Report Type: Spontaneous
  Country: KR (occurrence: KR)
  Receive Date: 20180307
  Receipt Date: 20180307
  Transmission Date: 20180509
  Serious: Yes (Death)
  Sender: FDA-Public Use
  Company Number: KR-PFIZER INC-2018095954

PATIENT

DRUGS (1)
  1. TORISEL [Suspect]
     Active Substance: TEMSIROLIMUS
     Indication: RENAL CELL CARCINOMA
     Dosage: UNK
     Dates: start: 201802

REACTIONS (1)
  - Death [Fatal]

NARRATIVE: CASE EVENT DATE: 201803
